FAERS Safety Report 19030125 (Version 1)
Quarter: 2021Q1

REPORT INFORMATION
  Report Type: Report from Study
  Country: IL (occurrence: IL)
  Receive Date: 20210319
  Receipt Date: 20210319
  Transmission Date: 20210420
  Serious: Yes (Hospitalization, Other)
  Sender: FDA-Public Use
  Company Number: NVSC2021IL057277

PATIENT
  Age: 15 Year
  Sex: Female
  Weight: 51.8 kg

DRUGS (4)
  1. TRAMETINIB [Suspect]
     Active Substance: TRAMETINIB
     Indication: GANGLIOGLIOMA
     Dosage: 1 MG
     Route: 048
     Dates: start: 20201015, end: 20210223
  2. NAXYN [Concomitant]
     Active Substance: NAPROXEN
     Indication: PRODUCT USED FOR UNKNOWN INDICATION
     Dosage: UNK
     Route: 065
  3. DABRAFENIB [Suspect]
     Active Substance: DABRAFENIB
     Indication: GANGLIOGLIOMA
     Dosage: 225 MG, QD
     Route: 048
     Dates: start: 20201015, end: 20210223
  4. COLCHICINE. [Concomitant]
     Active Substance: COLCHICINE
     Indication: PRODUCT USED FOR UNKNOWN INDICATION
     Dosage: 0.5 MG, BID
     Route: 065

REACTIONS (7)
  - Acute febrile neutrophilic dermatosis [Unknown]
  - Pyrexia [Unknown]
  - Rash [Recovered/Resolved]
  - C-reactive protein increased [Unknown]
  - Ganglioglioma [Unknown]
  - Malignant neoplasm progression [Unknown]
  - Pyrexia [Recovered/Resolved]

NARRATIVE: CASE EVENT DATE: 20201015
